FAERS Safety Report 24657284 (Version 1)
Quarter: 2024Q4

REPORT INFORMATION
  Report Type: Spontaneous
  Country: DE (occurrence: DE)
  Receive Date: 20241125
  Receipt Date: 20241125
  Transmission Date: 20250115
  Serious: Yes (Death, Other)
  Sender: AUROBINDO
  Company Number: DE-BRISTOL-MYERS SQUIBB COMPANY-2024-164810

PATIENT
  Age: 58 Year
  Sex: Female
  Weight: 67 kg

DRUGS (4)
  1. OXALIPLATIN [Suspect]
     Active Substance: OXALIPLATIN
     Indication: Oesophageal adenocarcinoma
     Dosage: 162 MILLIGRAM (14 DAY)
     Route: 042
     Dates: start: 20231025, end: 20240110
  2. FLUOROURACIL [Suspect]
     Active Substance: FLUOROURACIL
     Indication: Oesophageal adenocarcinoma
     Dosage: 1910 MILLIGRAM (14 DAY)
     Route: 042
     Dates: start: 20231025, end: 20240216
  3. OPDIVO [Suspect]
     Active Substance: NIVOLUMAB
     Indication: Oesophageal adenocarcinoma
     Dosage: 240 MILLIGRAM (14 DAY)
     Route: 042
     Dates: start: 20231025, end: 20240416
  4. PIPERACILLIN SODIUM\TAZOBACTAM SODIUM [Suspect]
     Active Substance: PIPERACILLIN SODIUM\TAZOBACTAM SODIUM
     Indication: Kidney infection
     Dosage: UNK
     Route: 065

REACTIONS (6)
  - Sepsis [Fatal]
  - Acute kidney injury [Not Recovered/Not Resolved]
  - Ileus [Not Recovered/Not Resolved]
  - Kidney infection [Not Recovered/Not Resolved]
  - Fistula [Not Recovered/Not Resolved]
  - Hepatic function abnormal [Unknown]

NARRATIVE: CASE EVENT DATE: 20240807
